FAERS Safety Report 25620364 (Version 2)
Quarter: 2025Q4

REPORT INFORMATION
  Report Type: Spontaneous
  Country: US (occurrence: US)
  Receive Date: 20250730
  Receipt Date: 20251006
  Transmission Date: 20260118
  Serious: No
  Sender: ROCHE
  Company Number: US-ROCHE-10000345972

PATIENT
  Age: 78 Year
  Sex: Female

DRUGS (27)
  1. ACTEMRA [Suspect]
     Active Substance: TOCILIZUMAB
     Indication: Product used for unknown indication
     Dosage: STRENGTH: 162/0.9 ML
     Route: 058
     Dates: start: 202308
  2. ALBUTEROL [Concomitant]
     Active Substance: ALBUTEROL
  3. aerosol [Concomitant]
  4. ECOTRIN [Concomitant]
     Active Substance: ASPIRIN
     Dosage: TAKE ONE TABLET BY MOUTH DAILY
  5. LIPITOR [Concomitant]
     Active Substance: ATORVASTATIN CALCIUM
     Dosage: TAKE 1 TABLET BY MOUTH DAILY BEFORE BREAKFAST
  6. ATACAND [Concomitant]
     Active Substance: CANDESARTAN CILEXETIL
     Dosage: TAKE 1 TABLET BY MOUTH DAILY
  7. CHOLECALCIFEROL [Concomitant]
     Active Substance: CHOLECALCIFEROL
     Dosage: 125 MCG, TAKE 2000 UNIT BY MOUTH DAILY
  8. CARDIZEM CD [Concomitant]
     Active Substance: DILTIAZEM HYDROCHLORIDE
     Dosage: TAKE 1 CAPSULE BY MOUTH DAILY
  9. CYMBALTA [Concomitant]
     Active Substance: DULOXETINE HYDROCHLORIDE
     Dosage: TAKE 1 CAPSULE BY MOUTH DAILY
  10. ZETIA [Concomitant]
     Active Substance: EZETIMIBE
     Dosage: TAKE 1 TABLET BY MOUTH DAILY
  11. PEPCID AC [Concomitant]
     Active Substance: FAMOTIDINE
     Dosage: TAKE 1 TABLET BY MOUTH DAILY
  12. TAMBOCOR [Concomitant]
     Active Substance: FLECAINIDE ACETATE
     Dosage: TAKE 1 TABLET BY MOUTH DAILY
  13. FOLVITE [Concomitant]
     Active Substance: FOLIC ACID
  14. APRESOLINE HYDROCHLORIDE [Concomitant]
     Active Substance: HYDRALAZINE HYDROCHLORIDE
     Dosage: TAKE 1 TABLET BY MOUTH DAILY
  15. ADVIL [Concomitant]
     Active Substance: IBUPROFEN
  16. NIZORAL [Concomitant]
     Active Substance: KETOCONAZOLE
  17. ACULAR [Concomitant]
     Active Substance: KETOROLAC TROMETHAMINE
  18. LIDOCAINE [Concomitant]
     Active Substance: LIDOCAINE
  19. LINZESS [Concomitant]
     Active Substance: LINACLOTIDE
     Dosage: 145 MCG TAKE 1 CAPSULE BY MOUTH DAILY BEFORE BREAKFAST
  20. MOBIC [Concomitant]
     Active Substance: MELOXICAM
  21. METHOTREXATE [Concomitant]
     Active Substance: METHOTREXATE
     Dosage: TAKE 8 TABLET ONCE A WEEK
  22. NITROSTAT [Concomitant]
     Active Substance: NITROGLYCERIN
     Dosage: TAKE 1 TABLET BY MOUTH DAILY
  23. LYRICA [Concomitant]
     Active Substance: PREGABALIN
     Dosage: TAKE 1 CAPSULE BY MOUTH DAILY BEFORE BREAKFAST
  24. OZEMPIC [Concomitant]
     Active Substance: SEMAGLUTIDE
     Dosage: TAKE 1 CAPSULE BY MOUTH DAILY BEFORE BREAKFAST
  25. OCEAN SALINE NASAL SPRAY [Concomitant]
     Active Substance: SODIUM CHLORIDE
     Dosage: 1 SPRAY FOR EACH NOSTRILS AS NEEDED
  26. ZANAFLEX [Concomitant]
     Active Substance: TIZANIDINE HYDROCHLORIDE
     Dosage: TAKE 1 TABLET BY MOUTH EVERY NIGHT AT EDTIME
  27. RETINA [Concomitant]
     Dosage: APPLY A PEA SIZE AMOUNT TO WHOLE FACE EVERY DAY AT BEDTIME

REACTIONS (4)
  - Exposure via skin contact [Unknown]
  - Device defective [Unknown]
  - Device difficult to use [Unknown]
  - No adverse event [Unknown]

NARRATIVE: CASE EVENT DATE: 20250713
